FAERS Safety Report 24863115 (Version 3)
Quarter: 2025Q2

REPORT INFORMATION
  Report Type: Spontaneous
  Country: US (occurrence: US)
  Receive Date: 20250120
  Receipt Date: 20250421
  Transmission Date: 20250717
  Serious: No
  Sender: BRISTOL-MYERS SQUIBB COMPANY
  Company Number: US-BRISTOL-MYERS SQUIBB COMPANY-2025-008388

PATIENT
  Age: 46 Year
  Sex: Female

DRUGS (4)
  1. ORENCIA [Suspect]
     Active Substance: ABATACEPT
     Indication: Rheumatoid arthritis
     Route: 058
     Dates: start: 202410
  2. ORENCIA [Suspect]
     Active Substance: ABATACEPT
     Route: 058
     Dates: start: 202108
  3. ORENCIA [Suspect]
     Active Substance: ABATACEPT
     Route: 058
     Dates: start: 202108
  4. NAPROXEN [Suspect]
     Active Substance: NAPROXEN
     Indication: Product used for unknown indication

REACTIONS (4)
  - Joint swelling [Unknown]
  - Arthralgia [Unknown]
  - Drug hypersensitivity [Unknown]
  - Urticaria [Unknown]

NARRATIVE: CASE EVENT DATE: 20241201
